FAERS Safety Report 15448602 (Version 1)
Quarter: 2018Q3

REPORT INFORMATION
  Report Type: Spontaneous
  Country: US (occurrence: US)
  Receive Date: 20180929
  Receipt Date: 20180929
  Transmission Date: 20181010
  Serious: Yes (Life-Threatening, Hospitalization, Other)
  Sender: FDA-Public Use
  Company Number: US-009507513-1809USA011350

PATIENT
  Age: 47 Year
  Sex: Male

DRUGS (2)
  1. PRINIVIL [Suspect]
     Active Substance: LISINOPRIL
     Indication: SUICIDE ATTEMPT
     Dosage: 200 MG, ONCE, APPROXIMATELY ; IN TOTAL
  2. AMLODIPINE [Suspect]
     Active Substance: AMLODIPINE BESYLATE
     Indication: SUICIDE ATTEMPT
     Dosage: 400 MG, ONCE, APPROXIMATELY ; IN TOTAL

REACTIONS (5)
  - Hypoxia [Recovering/Resolving]
  - Intentional overdose [Unknown]
  - Hypotension [Unknown]
  - Lactic acidosis [Unknown]
  - Pulmonary oedema [Recovering/Resolving]
